FAERS Safety Report 4782382-4 (Version None)
Quarter: 2005Q3

REPORT INFORMATION
  Report Type: 
  Country: None (occurrence: None)
  Receive Date: 20050929
  Receipt Date: 20050819
  Transmission Date: 20060218
  Serious: Yes (Death)
  Sender: FDA-Public Use
  Company Number: 2005AP04464

PATIENT
  Age: 97 Year
  Sex: Male
  Weight: 51 kg

DRUGS (13)
  1. MEROPEN [Suspect]
     Indication: PNEUMONIA
     Route: 041
     Dates: start: 20050620, end: 20050620
  2. MEROPEN [Suspect]
     Route: 041
     Dates: start: 20050621, end: 20050629
  3. RENIVACE [Concomitant]
     Indication: HYPERTENSION
     Route: 048
     Dates: start: 19970101
  4. NICODEL LA [Concomitant]
     Indication: HYPERTENSION
     Route: 048
     Dates: start: 19970101
  5. ALLOPURINOL [Concomitant]
     Indication: HYPERURICAEMIA
     Route: 048
     Dates: start: 19970101
  6. HARNAL [Concomitant]
     Indication: DYSURIA
     Route: 048
     Dates: start: 19980101
  7. SENNOSIDE [Concomitant]
     Indication: CONSTIPATION
     Route: 048
     Dates: start: 19980101
  8. LASIX [Concomitant]
     Indication: RENAL FAILURE CHRONIC
     Route: 048
     Dates: start: 20000428, end: 20050623
  9. LASIX [Concomitant]
     Route: 048
     Dates: start: 20050624
  10. BISOLVON [Concomitant]
     Indication: PNEUMONIA
     Route: 042
     Dates: start: 20050621
  11. DALACIN-S [Concomitant]
     Indication: PNEUMONIA
     Route: 041
     Dates: start: 20050622, end: 20050630
  12. GASTER [Concomitant]
     Indication: PROPHYLAXIS
     Route: 042
     Dates: start: 20050628
  13. OXYGEN SUPPLEMENTATION [Concomitant]

REACTIONS (5)
  - ACIDOSIS [None]
  - AGITATION [None]
  - BRAIN NATRIURETIC PEPTIDE INCREASED [None]
  - CARDIOMEGALY [None]
  - HAEMOLYTIC ANAEMIA [None]
